FAERS Safety Report 4280010-8 (Version None)
Quarter: 2004Q1

REPORT INFORMATION
  Report Type: 
  Country: None (occurrence: None)
  Receive Date: 20040121
  Receipt Date: 20040112
  Transmission Date: 20041129
  Serious: Yes (Hospitalization)
  Sender: FDA-Public Use
  Company Number: GB-JNJFOC-20040101899

PATIENT
  Age: 24 Year
  Sex: Female

DRUGS (1)
  1. CILEST (NORGESTIMATE / ETHINYL ESTRADIOL) [Suspect]
     Indication: ORAL CONTRACEPTION
     Dosage: ORAL
     Route: 048
     Dates: end: 20031201

REACTIONS (3)
  - FIBRIN D DIMER INCREASED [None]
  - PLEURISY [None]
  - PULMONARY EMBOLISM [None]
